FAERS Safety Report 5706122-7 (Version None)
Quarter: 2008Q2

REPORT INFORMATION
  Report Type: 
  Country: None (occurrence: None)
  Receive Date: 20080415
  Receipt Date: 20080407
  Transmission Date: 20081010
  Serious: Yes (Other)
  Sender: FDA-Public Use
  Company Number: US-ALLERGAN-0804093US

PATIENT
  Sex: Female

DRUGS (8)
  1. COMBIGAN [Suspect]
     Indication: GLAUCOMA
     Dosage: UNK, UNKNOWN
     Route: 047
     Dates: start: 20080205
  2. LUMIGAN [Concomitant]
     Indication: GLAUCOMA
     Dates: start: 20060101
  3. PILOCARPINE [Concomitant]
     Indication: DRUG USE FOR UNKNOWN INDICATION
  4. ZOLOFT [Concomitant]
     Indication: DRUG USE FOR UNKNOWN INDICATION
  5. SPIRONOLACTONE [Concomitant]
     Indication: DRUG USE FOR UNKNOWN INDICATION
  6. CARTIA XT [Concomitant]
     Indication: DRUG USE FOR UNKNOWN INDICATION
  7. COUMADIN [Concomitant]
     Indication: DRUG USE FOR UNKNOWN INDICATION
  8. DETROL [Concomitant]
     Indication: DRUG USE FOR UNKNOWN INDICATION

REACTIONS (3)
  - DIZZINESS [None]
  - FALL [None]
  - PELVIC FRACTURE [None]
